FAERS Safety Report 12600309 (Version 1)
Quarter: 2016Q3

REPORT INFORMATION
  Report Type: Spontaneous
  Country: US (occurrence: US)
  Receive Date: 20160727
  Receipt Date: 20160727
  Transmission Date: 20161109
  Serious: No
  Sender: FDA-Public Use
  Company Number: US-ASTRAZENECA-2016SE52435

PATIENT
  Sex: Female
  Weight: 83.5 kg

DRUGS (6)
  1. LISINOPRIL. [Suspect]
     Active Substance: LISINOPRIL
     Indication: HYPERTENSION
     Route: 048
  2. HUMALOG [Concomitant]
     Active Substance: INSULIN LISPRO
     Dosage: 40 UNITS THREE TIMES A DAY.
  3. DILTIAZEM. [Concomitant]
     Active Substance: DILTIAZEM
     Indication: HYPERTENSION
     Route: 048
  4. JENTADUETO [Concomitant]
     Active Substance: LINAGLIPTIN\METFORMIN HYDROCHLORIDE
     Indication: DIABETES MELLITUS
     Route: 048
  5. OXYBUTIN [Concomitant]
     Active Substance: OXYBUTYNIN
     Route: 048
  6. BYDUREON [Suspect]
     Active Substance: EXENATIDE
     Indication: TYPE 2 DIABETES MELLITUS
     Route: 058
     Dates: start: 201604

REACTIONS (2)
  - Injection site bruising [Unknown]
  - Injection site urticaria [Unknown]
